FAERS Safety Report 12549454 (Version 1)
Quarter: 2016Q3

REPORT INFORMATION
  Report Type: Spontaneous
  Country: ES (occurrence: ES)
  Receive Date: 20160712
  Receipt Date: 20160712
  Transmission Date: 20161109
  Serious: Yes (Death, Other)
  Sender: FDA-Public Use
  Company Number: ES-009507513-1606ESP013077

PATIENT
  Age: 55 Year
  Sex: Female
  Weight: 82 kg

DRUGS (27)
  1. CASPOFUNGIN ACETATE [Suspect]
     Active Substance: CASPOFUNGIN ACETATE
     Dosage: 50 MG/24 H
     Dates: start: 20130226, end: 20130306
  2. HEPARIN SODIUM. [Concomitant]
     Active Substance: HEPARIN SODIUM
     Indication: ANTICOAGULANT THERAPY
  3. FLUCONAZOLE. [Concomitant]
     Active Substance: FLUCONAZOLE
     Indication: ANTIFUNGAL TREATMENT
     Dosage: 200 MG, QD
     Route: 042
     Dates: start: 20130225, end: 20130226
  4. ACETAMINOPHEN. [Concomitant]
     Active Substance: ACETAMINOPHEN
     Indication: PYREXIA
     Dosage: 0-1 G/8H
     Route: 042
     Dates: start: 20130221, end: 20130306
  5. AMPHOTERICIN B. [Suspect]
     Active Substance: AMPHOTERICIN B
     Indication: BRONCHOPULMONARY ASPERGILLOSIS
     Dosage: 25 MG, Q12H, NEBULIZED
     Route: 055
     Dates: start: 20130228, end: 20130306
  6. FOLIC ACID. [Concomitant]
     Active Substance: FOLIC ACID
     Indication: VITAMIN SUPPLEMENTATION
     Dosage: 50 MG, UNK
     Route: 042
     Dates: start: 20130227, end: 20130227
  7. MIDAZOLAM [Concomitant]
     Active Substance: MIDAZOLAM\MIDAZOLAM HYDROCHLORIDE
     Indication: SEDATION
     Dosage: 250 MG/ DAY
     Route: 042
     Dates: start: 20130221, end: 20130306
  8. CISATRACURIUM BESYLATE. [Concomitant]
     Active Substance: CISATRACURIUM BESYLATE
     Indication: MUSCLE RELAXANT THERAPY
     Dosage: 150 MG/ D
     Route: 042
     Dates: start: 20130222, end: 20130306
  9. SALBUTAMOL [Concomitant]
     Active Substance: ALBUTEROL
     Dosage: 2.5 MG/ 8H, NEBULIZED
     Route: 055
     Dates: start: 20130225, end: 20130306
  10. HEPARIN SODIUM. [Concomitant]
     Active Substance: HEPARIN SODIUM
     Indication: EXTRACORPOREAL MEMBRANE OXYGENATION
     Dosage: 120U-240U/DAY
     Route: 042
     Dates: start: 20130222, end: 20130306
  11. NOREPINEPHRINE [Concomitant]
     Active Substance: NOREPINEPHRINE\NOREPINEPHRINE BITARTRATE
     Indication: SHOCK
     Dosage: 0.1-0.4 MG/H
     Route: 042
     Dates: start: 20130222, end: 20130306
  12. CASPOFUNGIN ACETATE [Suspect]
     Active Substance: CASPOFUNGIN ACETATE
     Indication: BRONCHOPULMONARY ASPERGILLOSIS
     Dosage: 70 MG, ONCE, FIRST DAY
     Dates: start: 20130225, end: 20130225
  13. MORPHINE SULFATE. [Concomitant]
     Active Substance: MORPHINE SULFATE
     Indication: ANALGESIC THERAPY
     Dosage: 100 MG/ DAY
     Route: 042
     Dates: start: 20130221, end: 20130306
  14. SALBUTAMOL [Concomitant]
     Active Substance: ALBUTEROL
     Indication: BRONCHOSPASM
     Dosage: 5 MG/ H
     Route: 042
     Dates: start: 20130222, end: 20130225
  15. MAGNESIUM SULFATE. [Concomitant]
     Active Substance: MAGNESIUM SULFATE
     Indication: BRONCHOSPASM
     Dosage: 1.5 MG/ 8H, NEBULIZED
     Route: 055
     Dates: start: 20130222, end: 20130225
  16. VORICONAZOLE. [Suspect]
     Active Substance: VORICONAZOLE
     Indication: BRONCHOPULMONARY ASPERGILLOSIS
     Dosage: 6 MG/KG, BID, FOR 1 DAY
     Route: 042
     Dates: start: 201302, end: 201302
  17. VORICONAZOLE. [Suspect]
     Active Substance: VORICONAZOLE
     Dosage: 600 MG, QD
     Route: 042
     Dates: start: 20130226, end: 20130306
  18. AMOXICILLIN (+) CLAVULANIC ACID [Concomitant]
     Active Substance: AMOXICILLIN\CLAVULANIC ACID
     Indication: ANTIBIOTIC THERAPY
     Dosage: 1 G/ 8H
     Route: 042
     Dates: start: 20130218, end: 20130221
  19. BUDESONIDE. [Concomitant]
     Active Substance: BUDESONIDE
     Indication: BRONCHOSPASM
     Dosage: 0.5 MG/ 8H, NEBULIZED
     Route: 055
     Dates: start: 20130221, end: 20130306
  20. PIPERACILLIN AND TAZOBACTAM [Concomitant]
     Active Substance: PIPERACILLIN SODIUM\TAZOBACTAM SODIUM
     Indication: ANTIBIOTIC THERAPY
     Dosage: 4 G/ 8H
     Route: 042
     Dates: start: 20130221, end: 20130227
  21. METHYLPREDNISOLONE SODIUM SUCCINATE. [Concomitant]
     Active Substance: METHYLPREDNISOLONE SODIUM SUCCINATE
     Indication: ANTIINFLAMMATORY THERAPY
     Dosage: 600 MG, QD
     Route: 042
     Dates: start: 20130221, end: 20130306
  22. METOCLOPRAMIDE. [Concomitant]
     Active Substance: METOCLOPRAMIDE
     Dosage: 0-30MG/D (IV/ENTERAL)
     Route: 042
     Dates: start: 20130221, end: 20130306
  23. IRON (UNSPECIFIED) [Concomitant]
     Active Substance: IRON
     Indication: MINERAL SUPPLEMENTATION
     Dosage: 100 MG, UNK
     Route: 042
     Dates: start: 20130227, end: 20130227
  24. VORICONAZOLE. [Suspect]
     Active Substance: VORICONAZOLE
     Dosage: 4 MG/KG, BID
     Route: 042
     Dates: start: 201302, end: 201302
  25. SIMVASTATIN. [Concomitant]
     Active Substance: SIMVASTATIN
     Indication: DYSLIPIDAEMIA
     Dosage: 40 MG, QD
     Route: 048
  26. IPRATROPIUM BROMIDE. [Concomitant]
     Active Substance: IPRATROPIUM BROMIDE
     Indication: BRONCHOSPASM
     Dosage: 500 MICROGRAM, Q8H, NEBULIZED
     Route: 055
     Dates: start: 20130221, end: 20130306
  27. CYANOCOBALAMIN (+) PYRIDOXINE (+) THIAMINE [Concomitant]
     Indication: VITAMIN SUPPLEMENTATION
     Dosage: 1 AMPOULE, UNK
     Route: 042
     Dates: start: 20130227, end: 20130306

REACTIONS (2)
  - Multiple organ dysfunction syndrome [Fatal]
  - Drug ineffective [Unknown]

NARRATIVE: CASE EVENT DATE: 2013
